FAERS Safety Report 4283987-X (Version None)
Quarter: 2004Q1

REPORT INFORMATION
  Report Type: 
  Country: None (occurrence: None)
  Receive Date: 20040202
  Receipt Date: 20040202
  Transmission Date: 20041129
  Serious: Yes (Life-Threatening, Hospitalization, Disabling)
  Sender: FDA-Public Use
  Company Number: None

PATIENT
  Sex: Female
  Weight: 68.0396 kg

DRUGS (2)
  1. PREMPRO [Suspect]
     Indication: HOT FLUSH
     Dosage: 1 THEN 2 ONCE DAILY ORAL
     Route: 048
     Dates: start: 19991102, end: 20011108
  2. ALPRAZALAM [Concomitant]

REACTIONS (2)
  - BREAST CANCER [None]
  - THROMBOSIS [None]
